FAERS Safety Report 4328623-9 (Version None)
Quarter: 2004Q1

REPORT INFORMATION
  Report Type: 
  Country: None (occurrence: None)
  Receive Date: 20040322
  Receipt Date: 20040305
  Transmission Date: 20041129
  Serious: Yes (Hospitalization)
  Sender: FDA-Public Use
  Company Number: 601114

PATIENT
  Age: 28 Year
  Sex: Male
  Weight: 71.6683 kg

DRUGS (2)
  1. TISSEEL VH KIT [Suspect]
     Indication: METASTATIC MALIGNANT MELANOMA
     Dosage: 2 CC; ONCE
     Dates: start: 20040218, end: 20040218
  2. MORPHINE [Concomitant]

REACTIONS (2)
  - CELLULITIS [None]
  - PROCEDURAL SITE REACTION [None]
